FAERS Safety Report 13726093 (Version 1)
Quarter: 2017Q3

REPORT INFORMATION
  Report Type: Spontaneous
  Country: US (occurrence: US)
  Receive Date: 20170707
  Receipt Date: 20170707
  Transmission Date: 20171127
  Serious: Yes (Other)
  Sender: FDA-Public Use
  Company Number: None

PATIENT
  Age: 26 Year
  Sex: Female

DRUGS (2)
  1. SUBOXONE [Suspect]
     Active Substance: BUPRENORPHINE HYDROCHLORIDE\NALOXONE HYDROCHLORIDE
     Indication: DRUG DEPENDENCE
     Dosage: DOSE - 8-2 MG SL - 1 DAILY
     Route: 060
     Dates: start: 20170425, end: 20170628
  2. SUBOXONE [Suspect]
     Active Substance: BUPRENORPHINE HYDROCHLORIDE\NALOXONE HYDROCHLORIDE
     Indication: DRUG DEPENDENCE
     Dosage: DOSE - 8-2MG TAB - SL - 1 DAILY
     Route: 060
     Dates: start: 20170628, end: 20170706

REACTIONS (4)
  - Rash [None]
  - Stomatitis [None]
  - Throat tightness [None]
  - Drug intolerance [None]

NARRATIVE: CASE EVENT DATE: 20170628
